FAERS Safety Report 8261945-8 (Version None)
Quarter: 2012Q2

REPORT INFORMATION
  Report Type: 
  Country: None (occurrence: None)
  Receive Date: 20120405
  Receipt Date: 20120327
  Transmission Date: 20120825
  Serious: Yes (Hospitalization)
  Sender: FDA-Public Use
  Company Number: DK-ASTRAZENECA-2012SE20481

PATIENT
  Age: 76 Year
  Sex: Male
  Weight: 64 kg

DRUGS (5)
  1. VISIPAQUE [Concomitant]
     Dosage: 180 ML
  2. ASPIRIN [Concomitant]
     Indication: ACUTE MYOCARDIAL INFARCTION
     Dates: start: 20120114
  3. BRILIQUE [Suspect]
     Indication: ACUTE MYOCARDIAL INFARCTION
     Route: 048
     Dates: start: 20120114
  4. METOPROLOL SUCCINATE [Concomitant]
     Indication: ACUTE MYOCARDIAL INFARCTION
     Route: 048
  5. SIMVASTATIN [Concomitant]
     Dates: start: 20120114, end: 20120224

REACTIONS (2)
  - RENAL FAILURE ACUTE [None]
  - AZOTAEMIA [None]
